FAERS Safety Report 5542932-7 (Version None)
Quarter: 2007Q4

REPORT INFORMATION
  Report Type: 
  Country: None (occurrence: None)
  Receive Date: 20071207
  Receipt Date: 20071127
  Transmission Date: 20080405
  Serious: Yes (Other)
  Sender: FDA-Public Use
  Company Number: 2007US002924

PATIENT
  Age: 54 Year
  Sex: Female

DRUGS (2)
  1. PROGRAF [Suspect]
     Indication: BONE MARROW TRANSPLANT
  2. PREDNISOLONE ACETATE [Suspect]
     Indication: BONE MARROW TRANSPLANT

REACTIONS (2)
  - ACUTE GRAFT VERSUS HOST DISEASE IN SKIN [None]
  - GRAFT VERSUS HOST DISEASE IN LUNG [None]
